FAERS Safety Report 5018478-1 (Version None)
Quarter: 2006Q2

REPORT INFORMATION
  Report Type: 
  Country: None (occurrence: None)
  Receive Date: 20060605
  Receipt Date: 20060404
  Transmission Date: 20061013
  Serious: Yes (Other)
  Sender: FDA-Public Use
  Company Number: US-BOEHRINGER INGELHEIM PHARMACEUTICALS, INC.-2006-BP-03760BP

PATIENT
  Age: 32 Year
  Sex: Female

DRUGS (6)
  1. APTIVUS/RITONAVIR CAPSULES [Suspect]
     Indication: HIV INFECTION
     Dosage: TPV 1000 MG / RTV 400 MG
     Route: 048
  2. ENFUVIRTIDE [Suspect]
     Indication: HIV INFECTION
     Route: 058
  3. TRUVADA [Suspect]
     Indication: HIV INFECTION
     Route: 048
  4. PROCRIT [Concomitant]
     Indication: ANAEMIA
  5. MEPRON [Concomitant]
  6. AZITHROMYCIN [Concomitant]

REACTIONS (2)
  - ABORTION SPONTANEOUS [None]
  - DRUG EXPOSURE DURING PREGNANCY [None]
